FAERS Safety Report 4891937-8 (Version None)
Quarter: 2006Q1

REPORT INFORMATION
  Report Type: 
  Country: None (occurrence: None)
  Receive Date: 20060126
  Receipt Date: 20051216
  Transmission Date: 20060701
  Serious: Yes (Hospitalization)
  Sender: FDA-Public Use
  Company Number: FR-AVENTIS-200514166FR

PATIENT
  Age: 61 Year
  Sex: Female

DRUGS (6)
  1. BIRODOGYL [Suspect]
     Route: 048
     Dates: start: 20050112, end: 20050112
  2. TAHOR [Concomitant]
     Indication: METABOLIC DISORDER
     Route: 048
  3. TRANDATE [Concomitant]
     Indication: ESSENTIAL HYPERTENSION
     Route: 048
  4. TRIAMTERENE AND HYDROCHLOROTHIAZIDE [Concomitant]
     Indication: ESSENTIAL HYPERTENSION
     Route: 048
  5. CHONDROSULF [Concomitant]
     Indication: OSTEOARTHRITIS
     Route: 048
  6. TANAKAN [Concomitant]

REACTIONS (4)
  - DERMATITIS BULLOUS [None]
  - EOSINOPHILIA [None]
  - PYREXIA [None]
  - RASH MACULO-PAPULAR [None]
